FAERS Safety Report 22270745 (Version 1)
Quarter: 2023Q2

REPORT INFORMATION
  Report Type: Spontaneous
  Country: US (occurrence: None)
  Receive Date: 20230428
  Receipt Date: 20230428
  Transmission Date: 20230721
  Serious: No
  Sender: FDA-Public Use
  Company Number: None

PATIENT
  Sex: Male

DRUGS (1)
  1. IMATINIB MESYLATE [Suspect]
     Active Substance: IMATINIB MESYLATE
     Indication: Malignant connective tissue neoplasm
     Dosage: OTHER QUANTITY : 1T;?FREQUENCY : DAILY;?
     Route: 048

REACTIONS (2)
  - Diarrhoea [None]
  - Anaemia [None]
